FAERS Safety Report 8115459-6 (Version None)
Quarter: 2012Q1

REPORT INFORMATION
  Report Type: 
  Country: None (occurrence: None)
  Receive Date: 20120201
  Receipt Date: 20120124
  Transmission Date: 20120608
  Serious: Yes (Other)
  Sender: FDA-Public Use
  Company Number: AUR-APL-2012-00199

PATIENT
  Age: 34 Year
  Sex: Male
  Weight: 86.1834 kg

DRUGS (3)
  1. MULTIVITAMIN (VIGRAN) [Concomitant]
  2. PREDNISONE TAB [Concomitant]
  3. SIMVASTATIN [Suspect]

REACTIONS (3)
  - DERMATITIS [None]
  - DRY SKIN [None]
  - RASH [None]
